FAERS Safety Report 23798532 (Version 5)
Quarter: 2024Q3

REPORT INFORMATION
  Report Type: Spontaneous
  Country: US (occurrence: US)
  Receive Date: 20240430
  Receipt Date: 20240918
  Transmission Date: 20241017
  Serious: No
  Sender: PFIZER
  Company Number: US-PFIZER INC-202400093770

PATIENT
  Age: 8 Year
  Sex: Female
  Weight: 17.24 kg

DRUGS (5)
  1. GENOTROPIN [Suspect]
     Active Substance: SOMATROPIN
     Indication: Optic nerve hypoplasia
     Dosage: 0.5 MG
  2. GENOTROPIN [Suspect]
     Active Substance: SOMATROPIN
     Dosage: 0.6MG ONCE A DAY BY INJECTION
     Dates: start: 202403
  3. GENOTROPIN [Suspect]
     Active Substance: SOMATROPIN
     Dosage: WAS TAKING 0.5MG TO 0.6MG
  4. DIURIL [CHLOROTHIAZIDE SODIUM] [Concomitant]
     Indication: Diabetes insipidus
     Dosage: 5MG TWICE A DAY
  5. BACLOFEN [Concomitant]
     Active Substance: BACLOFEN
     Indication: Muscle tightness
     Dosage: 5MG 3 TIMES DAY

REACTIONS (3)
  - Drug dose omission by device [Unknown]
  - Device mechanical issue [Unknown]
  - Off label use [Unknown]

NARRATIVE: CASE EVENT DATE: 20240418
